FAERS Safety Report 7706279-2 (Version None)
Quarter: 2011Q3

REPORT INFORMATION
  Report Type: 
  Country: None (occurrence: None)
  Receive Date: 20110824
  Receipt Date: 20110816
  Transmission Date: 20111222
  Serious: Yes (Death)
  Sender: FDA-Public Use
  Company Number: BR-ROCHE-797420

PATIENT
  Sex: Male
  Weight: 45 kg

DRUGS (1)
  1. XELODA [Suspect]
     Route: 065
     Dates: start: 20101101

REACTIONS (3)
  - DISEASE PROGRESSION [None]
  - VOMITING [None]
  - DIARRHOEA [None]
